FAERS Safety Report 4768252-6 (Version None)
Quarter: 2005Q3

REPORT INFORMATION
  Report Type: 
  Country: None (occurrence: None)
  Receive Date: 20050913
  Receipt Date: 20050825
  Transmission Date: 20060218
  Serious: Yes (Hospitalization)
  Sender: FDA-Public Use
  Company Number: TRP_0332_2005

PATIENT
  Age: 61 Year
  Sex: Male

DRUGS (10)
  1. RIBASPHERE [Suspect]
     Indication: HEPATITIS C
     Dosage: DF PO
     Route: 048
     Dates: start: 20050527
  2. PEG-INTRON [Suspect]
     Indication: HEPATITIS C
     Dosage: DF SC
     Route: 058
     Dates: start: 20050527
  3. ATENOLOL W /CHLORTALIDONE [Concomitant]
  4. FLOMAX [Concomitant]
  5. FLONASE [Concomitant]
  6. NEUPOGEN [Concomitant]
  7. PROCRIT [Concomitant]
  8. TIMOPTIC [Concomitant]
  9. ATENOLOL/CHLORTALIDONE [Concomitant]
  10. NEUPOGEN [Concomitant]

REACTIONS (5)
  - BLOOD POTASSIUM DECREASED [None]
  - BLOOD SODIUM DECREASED [None]
  - MALAISE [None]
  - VOMITING [None]
  - WHITE BLOOD CELL COUNT DECREASED [None]
